FAERS Safety Report 8371192-7 (Version None)
Quarter: 2012Q2

REPORT INFORMATION
  Report Type: 
  Country: None (occurrence: None)
  Receive Date: 20120518
  Receipt Date: 20120515
  Transmission Date: 20120825
  Serious: Yes (Other)
  Sender: FDA-Public Use
  Company Number: PHHY2012BR041736

PATIENT
  Age: 48 Year
  Sex: Female

DRUGS (6)
  1. GLUCOCORTICOIDS [Concomitant]
  2. RISPERIDONE [Suspect]
     Dosage: 4 MG, UNK
  3. BIPERIDEN HYDROCHLORIDE TAB [Suspect]
     Indication: PARKINSONISM
  4. RISPERIDONE [Suspect]
     Indication: MANIA
     Dosage: 2 MG, UNK
  5. VALPROIC ACID [Concomitant]
     Indication: BIPOLAR DISORDER
  6. AZATHIOPRINE [Concomitant]
     Dosage: UNK

REACTIONS (3)
  - CONCOMITANT DISEASE AGGRAVATED [None]
  - PARKINSONISM [None]
  - DERMATITIS BULLOUS [None]
